FAERS Safety Report 12614625 (Version 1)
Quarter: 2016Q3

REPORT INFORMATION
  Report Type: Spontaneous
  Country: FR (occurrence: FR)
  Receive Date: 20160802
  Receipt Date: 20160802
  Transmission Date: 20161109
  Serious: Yes (Life-Threatening)
  Sender: FDA-Public Use
  Company Number: FR-PFIZER INC-2016363841

PATIENT
  Age: 25 Year
  Sex: Female

DRUGS (3)
  1. ZOLOFT [Suspect]
     Active Substance: SERTRALINE HYDROCHLORIDE
     Dosage: 1 DF, 1X/DAY
     Route: 048
  2. XEROQUEL [Suspect]
     Active Substance: QUETIAPINE FUMARATE
     Dosage: 1200 MG, 1X/DAY
     Route: 048
     Dates: start: 201601, end: 20160427
  3. LYSANXIA [Suspect]
     Active Substance: PRAZEPAM
     Dosage: 1 DF, 1X/DAY
     Route: 048

REACTIONS (6)
  - Vomiting [Unknown]
  - Colitis ischaemic [Recovering/Resolving]
  - Procalcitonin increased [Recovering/Resolving]
  - Nausea [Unknown]
  - Pyrexia [Recovered/Resolved]
  - Abdominal pain [Unknown]

NARRATIVE: CASE EVENT DATE: 20160420
